FAERS Safety Report 4839473-9 (Version None)
Quarter: 2005Q4

REPORT INFORMATION
  Report Type: 
  Country: None (occurrence: None)
  Receive Date: 20051129
  Receipt Date: 20051123
  Transmission Date: 20060501
  Serious: Yes (Life-Threatening, Hospitalization)
  Sender: FDA-Public Use
  Company Number: 200514222EU

PATIENT
  Age: 41 Year
  Sex: Male

DRUGS (1)
  1. NICODERM CQ [Suspect]
     Indication: SMOKING CESSATION THERAPY
     Dosage: 1PAT PER DAY
     Route: 062
     Dates: start: 20050601, end: 20050830

REACTIONS (3)
  - CARDIAC ARREST [None]
  - HEART INJURY [None]
  - MYOCARDIAL INFARCTION [None]
